FAERS Safety Report 6058648-7 (Version None)
Quarter: 2009Q1

REPORT INFORMATION
  Report Type: 
  Country: None (occurrence: None)
  Receive Date: 20090130
  Receipt Date: 20090122
  Transmission Date: 20090719
  Serious: Yes (Other)
  Sender: FDA-Public Use
  Company Number: FR-PFIZER INC-2009160403

PATIENT

DRUGS (12)
  1. CAMPTOSAR [Suspect]
     Indication: GASTRIC CANCER
     Dosage: DOSE ACCORDING TO CYCLE
     Route: 042
  2. FLUOROURACIL [Suspect]
     Indication: GASTRIC CANCER
     Dosage: DOSE ACCORDING TO CYCLE
     Route: 042
  3. ZOPHREN [Suspect]
     Indication: GASTRIC CANCER
     Dosage: DOSE ACCORDING TO CYCLE
     Route: 042
     Dates: start: 20080901
  4. SECTRAL [Concomitant]
     Dosage: UNK
  5. INIPOMP [Concomitant]
     Dosage: UNK
  6. NEXIUM [Concomitant]
     Dosage: UNK
  7. PARACETAMOL [Concomitant]
     Indication: ANALGESIC THERAPY
     Dosage: UNK
  8. COVERSYL [Concomitant]
     Dosage: UNK
  9. METHYLPREDNISOLONE SODIUM SUCCINATE [Concomitant]
  10. METHYLPREDNISOLONE [Concomitant]
  11. FOLIC ACID [Concomitant]
  12. ATROPINE SULFATE [Concomitant]

REACTIONS (1)
  - ARRHYTHMIA [None]
